FAERS Safety Report 10921676 (Version 1)
Quarter: 2015Q1

REPORT INFORMATION
  Report Type: Spontaneous
  Country: None (occurrence: None)
  Receive Date: 20150128
  Receipt Date: 20150128
  Transmission Date: 20150721
  Serious: No
  Sender: FDA-Public Use
  Company Number: 2014TUS013815

PATIENT
  Sex: Female

DRUGS (2)
  1. UNSPECIFIED PAIN MEDICATION (ANALGESICS) [Concomitant]
  2. BRINTELLIX [Suspect]
     Active Substance: VORTIOXETINE HYDROBROMIDE
     Indication: MAJOR DEPRESSION

REACTIONS (2)
  - Diarrhoea [None]
  - Rectal fissure [None]
